FAERS Safety Report 13983066 (Version 1)
Quarter: 2017Q3

REPORT INFORMATION
  Report Type: Spontaneous
  Country: US (occurrence: US)
  Receive Date: 20170918
  Receipt Date: 20170918
  Transmission Date: 20171128
  Serious: No
  Sender: FDA-Public Use
  Company Number: None

PATIENT
  Age: 27 Year
  Sex: Female
  Weight: 54 kg

DRUGS (1)
  1. MELATONIN 5MG [Suspect]
     Active Substance: MELATONIN
     Indication: INSOMNIA
     Dosage: ?          QUANTITY:1 CAPSULE(S);?
     Route: 048
     Dates: start: 20170913, end: 20170918

REACTIONS (1)
  - Restless legs syndrome [None]

NARRATIVE: CASE EVENT DATE: 20170917
